FAERS Safety Report 6996482-1 (Version None)
Quarter: 2010Q3

REPORT INFORMATION
  Report Type: 
  Country: None (occurrence: None)
  Receive Date: 20100918
  Receipt Date: 20090310
  Transmission Date: 20110219
  Serious: No
  Sender: FDA-Public Use
  Company Number: US-WYE-H08530809

PATIENT
  Age: 32 Year
  Sex: Male
  Weight: 72.64 kg

DRUGS (4)
  1. EFFEXOR XR [Suspect]
     Indication: DEPRESSION
     Route: 048
     Dates: start: 20090101, end: 20090301
  2. EFFEXOR XR [Suspect]
     Indication: ANXIETY
  3. PROTONIX [Concomitant]
  4. LORAZEPAM [Concomitant]

REACTIONS (3)
  - DRUG WITHDRAWAL SYNDROME [None]
  - EUPHORIC MOOD [None]
  - HYPOAESTHESIA [None]
